FAERS Safety Report 15630161 (Version 1)
Quarter: 2018Q4

REPORT INFORMATION
  Report Type: Spontaneous
  Country: US (occurrence: US)
  Receive Date: 20181112
  Receipt Date: 20181112
  Transmission Date: 20190205
  Serious: No
  Sender: FDA-Public Use
  Company Number: None

PATIENT
  Age: 63 Year
  Sex: Female

DRUGS (1)
  1. TASIGNA [Suspect]
     Active Substance: NILOTINIB
     Indication: CHRONIC MYELOID LEUKAEMIA
     Route: 048
     Dates: start: 20180606

REACTIONS (6)
  - Rhinorrhoea [None]
  - Pyrexia [None]
  - Hyperhidrosis [None]
  - Deafness [None]
  - Alopecia [None]
  - Headache [None]

NARRATIVE: CASE EVENT DATE: 201806
